FAERS Safety Report 20143400 (Version 2)
Quarter: 2022Q1

REPORT INFORMATION
  Report Type: Spontaneous
  Country: US (occurrence: US)
  Receive Date: 20211203
  Receipt Date: 20220327
  Transmission Date: 20220423
  Serious: Yes (Other)
  Sender: FDA-Public Use
  Company Number: US-drreddys-SPO/USA/21/0144372

PATIENT
  Age: 27 Year
  Sex: Female

DRUGS (4)
  1. ACCUTANE [Suspect]
     Active Substance: ISOTRETINOIN
     Indication: Product used for unknown indication
     Dosage: RMA ISSUE DATE: 25/OCTOBER/2021 12:00:00 AM, 15/SEPTEMBER/2021 12:00:00 AM, 4/AUGUST/2021 12:00:00 A
     Dates: start: 20210524, end: 20211129
  2. ACCUTANE [Suspect]
     Active Substance: ISOTRETINOIN
     Dosage: RMA ISSUE DATE: 25/OCTOBER/2021 12:00:00 AM, 15/SEPTEMBER/2021 12:00:00 AM, 4/AUGUST/2021 12:00:00 A
     Dates: start: 20210524, end: 20211129
  3. ACCUTANE [Suspect]
     Active Substance: ISOTRETINOIN
     Dosage: RMA ISSUE DATE: 04-AUGUST-2021 12:00:00 AM
  4. ZENATANE [Suspect]
     Active Substance: ISOTRETINOIN
     Indication: Product used for unknown indication
     Dosage: RMA ISSUE DATE: 25/JUNE/2021 12:00:00 AM

REACTIONS (2)
  - Abortion induced [Unknown]
  - Exposure during pregnancy [Unknown]

NARRATIVE: CASE EVENT DATE: 20210101
